FAERS Safety Report 24845906 (Version 1)
Quarter: 2025Q1

REPORT INFORMATION
  Report Type: Spontaneous
  Country: US (occurrence: US)
  Receive Date: 20250115
  Receipt Date: 20250115
  Transmission Date: 20250408
  Serious: No
  Sender: TAKEDA
  Company Number: US-TAKEDA-2025TUS004623

PATIENT
  Sex: Female
  Weight: 59 kg

DRUGS (5)
  1. VYVANSE [Suspect]
     Active Substance: LISDEXAMFETAMINE DIMESYLATE
     Indication: Attention deficit hyperactivity disorder
  2. VYVANSE [Suspect]
     Active Substance: LISDEXAMFETAMINE DIMESYLATE
     Indication: Obsessive-compulsive disorder
  3. TRELEGY ELLIPTA [Concomitant]
     Active Substance: FLUTICASONE FUROATE\UMECLIDINIUM BROMIDE\VILANTEROL TRIFENATATE
  4. METOPROLOL [Concomitant]
     Active Substance: METOPROLOL
  5. Salivamax [Concomitant]

REACTIONS (5)
  - Feeling abnormal [Unknown]
  - Insurance issue [Unknown]
  - Drug hypersensitivity [Unknown]
  - Irritability [Unknown]
  - Dry mouth [Unknown]
